FAERS Safety Report 9373520 (Version 2)
Quarter: 2013Q3

REPORT INFORMATION
  Report Type: Spontaneous
  Country: NO (occurrence: NO)
  Receive Date: 20130627
  Receipt Date: 20130709
  Transmission Date: 20140515
  Serious: Yes (Disabling)
  Sender: FDA-Public Use
  Company Number: PHHY2013NO066467

PATIENT
  Sex: Male

DRUGS (4)
  1. SANDIMMUN [Suspect]
     Indication: DERMATITIS ATOPIC
     Dosage: 25 MG, BID
  2. SANDIMMUN [Suspect]
     Dosage: 50 MG, BID
  3. CORTISONE [Concomitant]
  4. HYDROCORTISONE [Concomitant]

REACTIONS (2)
  - Cataract [Unknown]
  - Visual acuity reduced [Unknown]
